FAERS Safety Report 12265238 (Version 2)
Quarter: 2016Q2

REPORT INFORMATION
  Report Type: Spontaneous
  Country: US (occurrence: US)
  Receive Date: 20160413
  Receipt Date: 20160421
  Transmission Date: 20160815
  Serious: Yes (Other)
  Sender: FDA-Public Use
  Company Number: US-JNJFOC-20160405092

PATIENT
  Age: 44 Year
  Sex: Male
  Weight: 63.5 kg

DRUGS (2)
  1. REMICADE [Suspect]
     Active Substance: INFLIXIMAB
     Indication: CROHN^S DISEASE
     Route: 042
  2. REMICADE [Suspect]
     Active Substance: INFLIXIMAB
     Indication: CROHN^S DISEASE
     Route: 042
     Dates: start: 2016

REACTIONS (5)
  - Spinal nerve stimulator implantation [Unknown]
  - Abnormal loss of weight [Not Recovered/Not Resolved]
  - Adverse event [Unknown]
  - Colectomy [Unknown]
  - Incontinence [Not Recovered/Not Resolved]

NARRATIVE: CASE EVENT DATE: 201006
